FAERS Safety Report 18735870 (Version 1)
Quarter: 2021Q1

REPORT INFORMATION
  Report Type: Spontaneous
  Country: US (occurrence: US)
  Receive Date: 20210108
  Receipt Date: 20210108
  Transmission Date: 20210419
  Serious: No
  Sender: FDA-Public Use
  Company Number: None

PATIENT
  Age: 59 Year
  Sex: Male
  Weight: 109 kg

DRUGS (1)
  1. AZITHROMYCIN (AZITHROMYCIN 500MG TAB) [Suspect]
     Active Substance: AZITHROMYCIN
     Indication: PNEUMONIA
     Route: 048
     Dates: start: 20200819, end: 20200819

REACTIONS (3)
  - Rash [None]
  - Pruritus [None]
  - Anaphylactic reaction [None]

NARRATIVE: CASE EVENT DATE: 20200819
